FAERS Safety Report 7738645-3 (Version None)
Quarter: 2011Q3

REPORT INFORMATION
  Report Type: 
  Country: None (occurrence: None)
  Receive Date: 20110908
  Receipt Date: 20110830
  Transmission Date: 20111222
  Serious: Yes (Other)
  Sender: FDA-Public Use
  Company Number: GB-GENENTECH-319255

PATIENT
  Sex: Male

DRUGS (2)
  1. MABTHERA [Suspect]
     Dosage: UNK
     Route: 042
     Dates: start: 20080401, end: 20081001
  2. MABTHERA [Suspect]
     Indication: NON-HODGKIN'S LYMPHOMA
     Dosage: UNK UNK, Q3M
     Route: 042
     Dates: start: 20081211, end: 20101203

REACTIONS (2)
  - DEPRESSION [None]
  - ABDOMINAL PAIN LOWER [None]
